FAERS Safety Report 12519160 (Version 3)
Quarter: 2016Q3

REPORT INFORMATION
  Report Type: Spontaneous
  Country: IN (occurrence: IN)
  Receive Date: 20160630
  Receipt Date: 20160705
  Transmission Date: 20161109
  Serious: Yes (Hospitalization)
  Sender: FDA-Public Use
  Company Number: IN-AKRON, INC.-1054439

PATIENT
  Age: 70 Year
  Sex: Male

DRUGS (2)
  1. FLUOXETINE ORAL SOLUTION [Suspect]
     Active Substance: FLUOXETINE HYDROCHLORIDE
     Indication: DEPRESSION
  2. OLANZAPINE. [Suspect]
     Active Substance: OLANZAPINE

REACTIONS (3)
  - Depression [Unknown]
  - Benign prostatic hyperplasia [Unknown]
  - Tongue discolouration [Recovering/Resolving]
